FAERS Safety Report 8510703-5 (Version None)
Quarter: 2012Q3

REPORT INFORMATION
  Report Type: 
  Country: None (occurrence: None)
  Receive Date: 20120705
  Receipt Date: 20120623
  Transmission Date: 20120928
  Serious: Yes (Life-Threatening, Hospitalization, Other)
  Sender: FDA-Public Use
  Company Number: AUR-APL-2012-02772

PATIENT
  Age: 52 Year
  Sex: Male

DRUGS (11)
  1. RAMIPRIL [Suspect]
     Indication: PRODUCT USED FOR UNKNOWN INDICATION
     Dosage: 5MG/DAY, ORAL
     Route: 048
  2. RISPERDAL [Suspect]
     Indication: PRODUCT USED FOR UNKNOWN INDICATION
     Dosage: 4MG.DAY, ORAL
     Route: 048
     Dates: start: 20110814, end: 20110822
  3. PALMIPERIDONE PALMITATE (PALIPERIDONE PALMITATE) [Suspect]
     Indication: PRODUCT USED FOR UNKNOWN INDICATION
     Dosage: 150MG SINGLE INTRAMUSCULAR, INTRAMUSCULAR, 100MG SINGLE, INTRAMUSCULAR, 100MG SINGLE, INTRAMUSCULAR
     Route: 030
     Dates: start: 20110802, end: 20110802
  4. PALMIPERIDONE PALMITATE (PALIPERIDONE PALMITATE) [Suspect]
     Indication: PRODUCT USED FOR UNKNOWN INDICATION
     Dosage: 150MG SINGLE INTRAMUSCULAR, INTRAMUSCULAR, 100MG SINGLE, INTRAMUSCULAR, 100MG SINGLE, INTRAMUSCULAR
     Route: 030
     Dates: start: 20110810, end: 20110810
  5. VITAMIN B12 [Concomitant]
  6. FOLIC ACID [Concomitant]
  7. LORAZEPAM [Concomitant]
  8. ALDACTONE [Suspect]
     Indication: PRODUCT USED FOR UNKNOWN INDICATION
     Dosage: 50MG/DAY, ORAL
     Route: 048
  9. CARVEDILOL [Concomitant]
  10. ASPIRIN [Concomitant]
  11. CIATYL-Z ACUPHASE (ZUCLOPENTHIXOL ACETATE) [Suspect]
     Indication: PRODUCT USED FOR UNKNOWN INDICATION
     Dosage: 100MG SINGLE, INTRAMUSCULAR
     Route: 030
     Dates: start: 20110816, end: 20110816

REACTIONS (11)
  - HYPONATRAEMIA [None]
  - DYSSTASIA [None]
  - ALTERED STATE OF CONSCIOUSNESS [None]
  - EPILEPSY [None]
  - MEMORY IMPAIRMENT [None]
  - VOMITING [None]
  - DIARRHOEA [None]
  - VOMITING PROJECTILE [None]
  - BLOOD PRESSURE INCREASED [None]
  - POLYDIPSIA PSYCHOGENIC [None]
  - SKIN DISORDER [None]
